FAERS Safety Report 4536496-4 (Version None)
Quarter: 2004Q4

REPORT INFORMATION
  Report Type: 
  Country: None (occurrence: None)
  Receive Date: 20041220
  Receipt Date: 20041208
  Transmission Date: 20050328
  Serious: Yes (Other)
  Sender: FDA-Public Use
  Company Number: USA-2002-002909

PATIENT
  Age: 62 Year
  Sex: Male
  Weight: 104.3 kg

DRUGS (13)
  1. BETASERON [Suspect]
     Indication: MULTIPLE SCLEROSIS
     Dosage: SEE IMAGE
     Route: 058
     Dates: start: 19960101, end: 20020806
  2. BETASERON [Suspect]
     Indication: MULTIPLE SCLEROSIS
     Dosage: SEE IMAGE
     Route: 058
     Dates: start: 20020806
  3. ZOLOFT [Concomitant]
  4. LIPITOR [Concomitant]
  5. PHENTERMINE [Concomitant]
  6. ALEVE [Concomitant]
  7. VITAMIN B COMPLEX CAP [Concomitant]
  8. ESTER-C (CALCIUM ASCORBATE) [Concomitant]
  9. CALTRATE [Concomitant]
  10. VITAMIN E [Concomitant]
  11. LIPITOR [Concomitant]
  12. PRILOSEC [Concomitant]
  13. PREDNISONE [Concomitant]

REACTIONS (3)
  - INTERSTITIAL LUNG DISEASE [None]
  - OSTEOPENIA [None]
  - PULMONARY HYPERTENSION [None]
